FAERS Safety Report 8069351-6 (Version None)
Quarter: 2012Q1

REPORT INFORMATION
  Report Type: 
  Country: None (occurrence: None)
  Receive Date: 20120125
  Receipt Date: 20120120
  Transmission Date: 20120608
  Serious: Yes (Other)
  Sender: FDA-Public Use
  Company Number: US-JNJFOC-20120109777

PATIENT
  Age: 69 Year
  Sex: Male

DRUGS (32)
  1. DOXORUBICIN HCL [Suspect]
     Route: 042
  2. CYCLOPHOSPHAMIDE [Suspect]
     Indication: BURKITT'S LYMPHOMA
     Route: 065
  3. VINCRISTINE [Suspect]
     Route: 065
  4. RITUXIMAB [Suspect]
     Route: 042
  5. ETOPOSIDE [Suspect]
     Route: 065
  6. CYTARABINE [Suspect]
     Indication: BURKITT'S LYMPHOMA
     Route: 065
  7. DOXORUBICIN HCL [Suspect]
     Route: 042
  8. IFOSFAMIDE [Suspect]
     Indication: BURKITT'S LYMPHOMA
     Route: 065
  9. VINCRISTINE [Suspect]
     Route: 065
  10. METHOTREXATE [Suspect]
     Route: 042
  11. RITUXIMAB [Suspect]
     Route: 042
  12. CYTARABINE [Suspect]
     Route: 065
  13. METHOTREXATE [Suspect]
     Route: 042
  14. RITUXIMAB [Suspect]
     Route: 042
  15. IFOSFAMIDE [Suspect]
     Route: 065
  16. CYTARABINE [Suspect]
     Route: 065
  17. CYCLOPHOSPHAMIDE [Suspect]
     Route: 065
  18. VINCRISTINE [Suspect]
     Route: 065
  19. METHOTREXATE [Suspect]
     Indication: BURKITT'S LYMPHOMA
     Route: 042
  20. DOXORUBICIN HCL [Suspect]
     Indication: BURKITT'S LYMPHOMA
     Route: 042
  21. CYCLOPHOSPHAMIDE [Suspect]
     Route: 065
  22. METHOTREXATE [Suspect]
     Route: 042
  23. ETOPOSIDE [Suspect]
     Route: 065
  24. CYCLOPHOSPHAMIDE [Suspect]
     Route: 065
  25. VINCRISTINE [Suspect]
     Indication: BURKITT'S LYMPHOMA
     Route: 065
  26. IFOSFAMIDE [Suspect]
     Route: 065
  27. ETOPOSIDE [Suspect]
     Route: 065
  28. DOXORUBICIN HCL [Suspect]
     Route: 042
  29. RITUXIMAB [Suspect]
     Indication: BURKITT'S LYMPHOMA
     Route: 042
  30. IFOSFAMIDE [Suspect]
     Route: 065
  31. ETOPOSIDE [Suspect]
     Indication: BURKITT'S LYMPHOMA
     Route: 065
  32. CYTARABINE [Suspect]
     Route: 065

REACTIONS (1)
  - CARDIAC DISORDER [None]
